FAERS Safety Report 15230126 (Version 1)
Quarter: 2018Q3

REPORT INFORMATION
  Report Type: Spontaneous
  Country: US (occurrence: US)
  Receive Date: 20180802
  Receipt Date: 20180802
  Transmission Date: 20181010
  Serious: Yes (Other)
  Sender: FDA-Public Use
  Company Number: US-ACCORD-065798

PATIENT
  Age: 67 Year
  Sex: Female
  Weight: 81.65 kg

DRUGS (8)
  1. NEOSAR [Suspect]
     Active Substance: CYCLOPHOSPHAMIDE
     Indication: INVASIVE DUCTAL BREAST CARCINOMA
     Dosage: NUMBER OF CYCLES: 12
  2. NIFEDIPINE. [Concomitant]
     Active Substance: NIFEDIPINE
  3. DOXORUBICIN [Suspect]
     Active Substance: DOXORUBICIN
     Indication: INVASIVE DUCTAL BREAST CARCINOMA
     Dosage: NUMBER OF CYCLES: 12
  4. CLONIDINE. [Concomitant]
     Active Substance: CLONIDINE
  5. DECADRON [Concomitant]
     Active Substance: DEXAMETHASONE
  6. LISINOPRIL. [Concomitant]
     Active Substance: LISINOPRIL
  7. DOCETAXEL ACCORD [Suspect]
     Active Substance: DOCETAXEL
     Indication: INVASIVE DUCTAL BREAST CARCINOMA
     Dosage: NUMBER OF CYCLES: 12
     Dates: start: 20150803, end: 20151218
  8. ALOXI [Concomitant]
     Active Substance: PALONOSETRON HYDROCHLORIDE

REACTIONS (1)
  - Alopecia [Not Recovered/Not Resolved]

NARRATIVE: CASE EVENT DATE: 201604
